FAERS Safety Report 5615179-3 (Version None)
Quarter: 2008Q1

REPORT INFORMATION
  Report Type: 
  Country: None (occurrence: None)
  Receive Date: 20080206
  Receipt Date: 20071114
  Transmission Date: 20080703
  Serious: No
  Sender: FDA-Public Use
  Company Number: A0694522A

PATIENT
  Age: 64 Year
  Sex: Female

DRUGS (5)
  1. ARIXTRA [Suspect]
     Indication: THROMBOSIS PROPHYLAXIS
     Route: 058
     Dates: start: 20071002, end: 20071112
  2. ATIVAN [Concomitant]
  3. ACIPHEX [Concomitant]
  4. ULTRAM [Concomitant]
  5. TYLENOL (CAPLET) [Concomitant]

REACTIONS (4)
  - DIPLOPIA [None]
  - DIZZINESS [None]
  - LETHARGY [None]
  - MALAISE [None]
